FAERS Safety Report 10279216 (Version 1)
Quarter: 2014Q3

REPORT INFORMATION
  Report Type: Spontaneous
  Country: US (occurrence: US)
  Receive Date: 20140707
  Receipt Date: 20140707
  Transmission Date: 20150326
  Serious: Yes (Disabling)
  Sender: FDA-Public Use
  Company Number: US-009507513-1407USA000556

PATIENT
  Age: 48 Year
  Sex: Male

DRUGS (6)
  1. RASAGILINE [Concomitant]
     Active Substance: RASAGILINE
     Indication: PARKINSON^S DISEASE
     Dosage: 1MG ONCE A DAY
  2. AMANTADINE HYDROCHLORIDE. [Concomitant]
     Active Substance: AMANTADINE HYDROCHLORIDE
     Indication: PARKINSON^S DISEASE
     Dosage: 100 MG TWICE A DAY
  3. SINEMET [Suspect]
     Active Substance: CARBIDOPA\LEVODOPA
     Dosage: 1 TABLETS EVERY 3H
     Route: 048
  4. SINEMET [Suspect]
     Active Substance: CARBIDOPA\LEVODOPA
     Dosage: HALF TO ONE TABLET EVERY 3.5- 4 H
     Route: 048
  5. SINEMET [Suspect]
     Active Substance: CARBIDOPA\LEVODOPA
     Indication: PARKINSON^S DISEASE
     Dosage: 1.5 TABLETS EVERY 3H
     Route: 048
  6. SINEMET [Suspect]
     Active Substance: CARBIDOPA\LEVODOPA
     Dosage: ONE TABLET EVERY 3.5H
     Route: 048

REACTIONS (4)
  - Sleep disorder [Unknown]
  - Therapeutic response changed [Unknown]
  - On and off phenomenon [Unknown]
  - Dyskinesia [Recovered/Resolved]
